FAERS Safety Report 9892573 (Version 1)
Quarter: 2014Q1

REPORT INFORMATION
  Report Type: Spontaneous
  Country: CA (occurrence: CA)
  Receive Date: 20140212
  Receipt Date: 20140212
  Transmission Date: 20141002
  Serious: Yes (Disabling)
  Sender: FDA-Public Use
  Company Number: PHHY2014CA016345

PATIENT
  Age: 68 Year
  Sex: Female

DRUGS (3)
  1. 5-FLUOROURACIL [Suspect]
     Indication: ADJUVANT THERAPY
     Dates: start: 199012
  2. LEVAMISOLE [Suspect]
     Indication: ADJUVANT THERAPY
     Dates: start: 199012
  3. LEUCOVORIN [Concomitant]
     Indication: ADJUVANT THERAPY
     Dates: start: 199012

REACTIONS (12)
  - Affect lability [Not Recovered/Not Resolved]
  - Depression [Not Recovered/Not Resolved]
  - Leukoencephalopathy [Not Recovered/Not Resolved]
  - Flat affect [Not Recovered/Not Resolved]
  - Dysarthria [Not Recovered/Not Resolved]
  - Balance disorder [Not Recovered/Not Resolved]
  - Ataxia [Not Recovered/Not Resolved]
  - Aphasia [Not Recovered/Not Resolved]
  - Apraxia [Not Recovered/Not Resolved]
  - Facial paresis [Not Recovered/Not Resolved]
  - Hyperreflexia [Not Recovered/Not Resolved]
  - Extensor plantar response [Not Recovered/Not Resolved]
